FAERS Safety Report 6039797-6 (Version None)
Quarter: 2009Q1

REPORT INFORMATION
  Report Type: 
  Country: None (occurrence: None)
  Receive Date: 20090116
  Receipt Date: 20090107
  Transmission Date: 20090719
  Serious: Yes (Death, Hospitalization)
  Sender: FDA-Public Use
  Company Number: BR-BAYER-200910615LA

PATIENT
  Sex: Female
  Weight: 68 kg

DRUGS (2)
  1. ASPIRIN [Suspect]
     Indication: PLATELET AGGREGATION INHIBITION
  2. CLONAZEPAM [Concomitant]
     Indication: SLEEP DISORDER
     Dosage: UNIT DOSE: 1 DF
     Route: 048

REACTIONS (1)
  - ORGAN FAILURE [None]
